FAERS Safety Report 24966176 (Version 3)
Quarter: 2025Q1

REPORT INFORMATION
  Report Type: Report from Study
  Country: AR (occurrence: AR)
  Receive Date: 20250213
  Receipt Date: 20250225
  Transmission Date: 20250409
  Serious: Yes (Other)
  Sender: NOVARTIS
  Company Number: AR-002147023-NVSC2022AR025176

PATIENT
  Age: 59 Year
  Sex: Female

DRUGS (4)
  1. COSENTYX [Suspect]
     Active Substance: SECUKINUMAB
     Indication: Psoriasis
     Dosage: 300 MG, QMO
     Route: 058
     Dates: start: 20220105
  2. COSENTYX [Suspect]
     Active Substance: SECUKINUMAB
     Indication: Psoriatic arthropathy
     Route: 058
  3. COSENTYX [Suspect]
     Active Substance: SECUKINUMAB
     Route: 065
     Dates: start: 202412
  4. PENICILLIN [Concomitant]
     Active Substance: PENICILLIN
     Indication: Bacterial infection
     Dosage: 2400000 IU, QMO  FOR 6 MONTHS
     Route: 065
     Dates: start: 2023

REACTIONS (13)
  - Psoriatic arthropathy [Not Recovered/Not Resolved]
  - COVID-19 [Recovered/Resolved]
  - Pyrexia [Recovered/Resolved]
  - Osteoarthritis [Unknown]
  - Psoriasis [Recovering/Resolving]
  - Dry skin [Unknown]
  - Skin fissures [Unknown]
  - Skin lesion [Unknown]
  - Skin exfoliation [Unknown]
  - Erythema [Unknown]
  - Fall [Unknown]
  - Onychomadesis [Not Recovered/Not Resolved]
  - Off label use [Unknown]

NARRATIVE: CASE EVENT DATE: 20220112
